FAERS Safety Report 5498256-X (Version None)
Quarter: 2007Q4

REPORT INFORMATION
  Report Type: 
  Country: None (occurrence: None)
  Receive Date: 20071025
  Receipt Date: 20070420
  Transmission Date: 20080405
  Serious: Yes (Hospitalization)
  Sender: FDA-Public Use
  Company Number: A0648180A

PATIENT
  Age: 82 Year
  Sex: Female

DRUGS (10)
  1. ADVAIR DISKUS 100/50 [Suspect]
     Indication: CHRONIC OBSTRUCTIVE PULMONARY DISEASE
     Dosage: 1PUFF TWICE PER DAY
     Route: 055
     Dates: start: 20000101
  2. SPIRIVA [Concomitant]
  3. DYAZIDE [Concomitant]
  4. NORVASC [Concomitant]
  5. CITALOPRAM [Concomitant]
  6. PREMARIN [Concomitant]
  7. SIMVASTATIN [Concomitant]
  8. VIT C [Concomitant]
  9. CENTRUM SILVER [Concomitant]
  10. OXYGEN [Concomitant]

REACTIONS (1)
  - PNEUMONIA [None]
